FAERS Safety Report 10417522 (Version 2)
Quarter: 2014Q3

REPORT INFORMATION
  Report Type: Report from Study
  Country: PL (occurrence: PL)
  Receive Date: 20140829
  Receipt Date: 20140829
  Transmission Date: 20150326
  Serious: Yes (Hospitalization, Other)
  Sender: FDA-Public Use
  Company Number: PL-BIOGENIDEC-2014BI031224

PATIENT
  Age: 48 Year
  Sex: Female

DRUGS (1)
  1. BIIB017 [Suspect]
     Active Substance: PEGINTERFERON BETA-1A
     Indication: MULTIPLE SCLEROSIS
     Route: 058
     Dates: start: 20130312

REACTIONS (1)
  - Radius fracture [Recovered/Resolved with Sequelae]

NARRATIVE: CASE EVENT DATE: 20140330
